FAERS Safety Report 6493475-8 (Version None)
Quarter: 2009Q4

REPORT INFORMATION
  Report Type: 
  Country: None (occurrence: None)
  Receive Date: 20091214
  Receipt Date: 20091204
  Transmission Date: 20100525
  Serious: Yes (Hospitalization, Other)
  Sender: FDA-Public Use
  Company Number: GB-PFIZER INC-2009288024

PATIENT
  Age: 73 Year
  Sex: Female

DRUGS (1)
  1. XALATAN [Suspect]
     Indication: GLAUCOMA
     Dosage: 1 DROP IN THE LEFT EYE AT NIGHT
     Route: 047
     Dates: start: 20091002

REACTIONS (5)
  - EYE INFLAMMATION [None]
  - EYE IRRITATION [None]
  - EYE PRURITUS [None]
  - HYPOAESTHESIA TEETH [None]
  - OCULAR HYPERAEMIA [None]
